FAERS Safety Report 13718502 (Version 2)
Quarter: 2017Q3

REPORT INFORMATION
  Report Type: Report from Study
  Country: US (occurrence: US)
  Receive Date: 20170705
  Receipt Date: 20170807
  Transmission Date: 20171127
  Serious: Yes (Death, Hospitalization)
  Sender: FDA-Public Use
  Company Number: US-EXELIXIS-CABO-17009593

PATIENT
  Age: 55 Year
  Sex: Male

DRUGS (11)
  1. FISH OIL [Concomitant]
     Active Substance: FISH OIL
  2. ZOCOR [Concomitant]
     Active Substance: SIMVASTATIN
  3. CHOLESTYRAMINE. [Concomitant]
     Active Substance: CHOLESTYRAMINE
  4. TUMS [Concomitant]
     Active Substance: CALCIUM CARBONATE
  5. MEGACE [Concomitant]
     Active Substance: MEGESTROL ACETATE
  6. INLYTA [Concomitant]
     Active Substance: AXITINIB
  7. ONDANSETRON [Concomitant]
     Active Substance: ONDANSETRON
  8. MULTIVITAMIN [Concomitant]
     Active Substance: VITAMINS
  9. XGEVA [Concomitant]
     Active Substance: DENOSUMAB
  10. OXYCODONE [Concomitant]
     Active Substance: OXYCODONE
  11. CABOMETYX [Suspect]
     Active Substance: CABOZANTINIB S-MALATE
     Indication: RENAL CANCER
     Dosage: 60 MG, QD
     Route: 048
     Dates: start: 20170504, end: 201705

REACTIONS (2)
  - Pneumonia [Unknown]
  - Death [Fatal]

NARRATIVE: CASE EVENT DATE: 20170622
